FAERS Safety Report 16525267 (Version 2)
Quarter: 2019Q3

REPORT INFORMATION
  Report Type: Spontaneous
  Country: None (occurrence: US)
  Receive Date: 20190702
  Receipt Date: 20190801
  Transmission Date: 20191004
  Serious: No
  Sender: FDA-Public Use
  Company Number: US-VIFOR (INTERNATIONAL) INC.-VIT-2019-05852

PATIENT
  Sex: Male
  Weight: 65.6 kg

DRUGS (6)
  1. VELTASSA [Suspect]
     Active Substance: PATIROMER
     Indication: HYPERKALAEMIA
     Dates: start: 201906
  2. VELTASSA [Suspect]
     Active Substance: PATIROMER
     Dates: start: 201907
  3. LISINOPRIL. [Suspect]
     Active Substance: LISINOPRIL
     Dates: end: 2019
  4. VELTASSA [Suspect]
     Active Substance: PATIROMER
  5. LISINOPRIL. [Suspect]
     Active Substance: LISINOPRIL
     Dates: start: 201907
  6. AMLODIPINE [Concomitant]
     Active Substance: AMLODIPINE BESYLATE

REACTIONS (9)
  - Constipation [Not Recovered/Not Resolved]
  - Dysgeusia [Unknown]
  - Dry mouth [Unknown]
  - Off label use [Unknown]
  - Suspected product quality issue [Unknown]
  - Breath odour [Unknown]
  - Abdominal discomfort [Unknown]
  - Tongue coated [Unknown]
  - Tooth deposit [Unknown]

NARRATIVE: CASE EVENT DATE: 2019
